FAERS Safety Report 7307621-7 (Version None)
Quarter: 2011Q1

REPORT INFORMATION
  Report Type: 
  Country: None (occurrence: None)
  Receive Date: 20110211
  Receipt Date: 20110204
  Transmission Date: 20110831
  Serious: Yes (Hospitalization, Other)
  Sender: FDA-Public Use
  Company Number: 2009-198042-NL

PATIENT
  Age: 22 Year
  Sex: Female
  Weight: 72.5755 kg

DRUGS (3)
  1. CHLOROQUINE [Concomitant]
  2. IBUPROFEN [Concomitant]
  3. NUVARING [Suspect]
     Indication: CONTRACEPTION
     Dosage: 1 DF
     Dates: start: 20060901, end: 20070626

REACTIONS (11)
  - PLATELET COUNT INCREASED [None]
  - CHLAMYDIA TEST POSITIVE [None]
  - MUSCLE STRAIN [None]
  - NERVOUSNESS [None]
  - PULMONARY EMBOLISM [None]
  - MUSCULOSKELETAL CHEST PAIN [None]
  - TELANGIECTASIA [None]
  - OVARIAN CYST [None]
  - DEEP VEIN THROMBOSIS [None]
  - THROMBOPHLEBITIS [None]
  - MAY-THURNER SYNDROME [None]
